FAERS Safety Report 9298054 (Version 3)
Quarter: 2013Q2

REPORT INFORMATION
  Report Type: Report from Study
  Country: CH (occurrence: CH)
  Receive Date: 20130520
  Receipt Date: 20130627
  Transmission Date: 20140414
  Serious: Yes (Hospitalization)
  Sender: FDA-Public Use
  Company Number: CH-BRISTOL-MYERS SQUIBB COMPANY-18905174

PATIENT
  Age: 75 Year
  Sex: Male

DRUGS (5)
  1. CETUXIMAB [Suspect]
     Indication: OESOPHAGEAL CARCINOMA
     Dosage: INTR 1MAY13, LAST DOSE-450 MG1IN1WK AND ONGOING
     Route: 042
     Dates: start: 20130404
  2. CISPLATIN FOR INJ [Suspect]
     Indication: OESOPHAGEAL CARCINOMA
     Route: 042
     Dates: start: 20130404, end: 20130404
  3. CARBOPLATIN INJECTION [Suspect]
     Indication: OESOPHAGEAL CARCINOMA
     Dosage: CONTINUING.
     Route: 042
     Dates: start: 20130424
  4. DOCETAXEL [Suspect]
     Indication: OESOPHAGEAL CARCINOMA
     Dosage: CONTINUING.
     Route: 042
     Dates: start: 20130404
  5. SINTROM [Concomitant]
     Indication: PROPHYLAXIS

REACTIONS (2)
  - Mouth haemorrhage [Recovered/Resolved]
  - International normalised ratio increased [Recovered/Resolved]
